FAERS Safety Report 9326060 (Version 9)
Quarter: 2014Q2

REPORT INFORMATION
  Report Type: Report from Study
  Country: CA (occurrence: CA)
  Receive Date: 20130604
  Receipt Date: 20140528
  Transmission Date: 20141212
  Serious: Yes (Hospitalization, Other)
  Sender: FDA-Public Use
  Company Number: CA-ROCHE-1140075

PATIENT
  Age: 56 Year
  Sex: Female
  Weight: 89.5 kg

DRUGS (12)
  1. ACTEMRA [Suspect]
     Indication: RHEUMATOID ARTHRITIS
     Route: 042
     Dates: start: 20120229
  2. RITUXAN [Suspect]
     Indication: RHEUMATOID ARTHRITIS
     Route: 042
     Dates: start: 20110802, end: 20110817
  3. ARTHROTEC [Concomitant]
  4. ALTACE [Concomitant]
  5. DIDROCAL [Concomitant]
  6. FOLIC ACID [Concomitant]
  7. METHOTREXATE [Concomitant]
  8. PREDNISONE [Concomitant]
  9. TYLENOL [Concomitant]
     Route: 048
     Dates: start: 20110802, end: 20110817
  10. BENADRYL (CANADA) [Concomitant]
     Route: 048
     Dates: start: 20110802, end: 20110817
  11. METHYLPREDNISOLONE [Concomitant]
     Route: 042
     Dates: start: 20110802, end: 20110817
  12. OXYNEO [Concomitant]

REACTIONS (16)
  - Arthralgia [Unknown]
  - Foot deformity [Recovered/Resolved]
  - Ankle operation [Unknown]
  - Foot deformity [Recovering/Resolving]
  - Swelling [Not Recovered/Not Resolved]
  - Musculoskeletal stiffness [Not Recovered/Not Resolved]
  - Cystitis [Not Recovered/Not Resolved]
  - Respiratory tract congestion [Not Recovered/Not Resolved]
  - Headache [Not Recovered/Not Resolved]
  - Cough [Not Recovered/Not Resolved]
  - Weight increased [Unknown]
  - Gastroenteritis viral [Not Recovered/Not Resolved]
  - Fatigue [Unknown]
  - Influenza [Not Recovered/Not Resolved]
  - Arthralgia [Not Recovered/Not Resolved]
  - Drug effect decreased [Unknown]
